FAERS Safety Report 6091229-8 (Version None)
Quarter: 2009Q1

REPORT INFORMATION
  Report Type: 
  Country: None (occurrence: None)
  Receive Date: 20090223
  Receipt Date: 20090216
  Transmission Date: 20090719
  Serious: Yes (Other)
  Sender: FDA-Public Use
  Company Number: 2009AL000950

PATIENT
  Age: 63 Year
  Sex: Female

DRUGS (4)
  1. IRINOTECAN HCL [Suspect]
     Indication: ADENOCARCINOMA
     Dosage: 520 MG; IV
     Route: 042
  2. ACEBUTOLOL [Concomitant]
  3. GRANISETRON [Concomitant]
  4. DEXAMETHASONE [Concomitant]

REACTIONS (4)
  - CHOLINERGIC SYNDROME [None]
  - DYSARTHRIA [None]
  - NERVOUS SYSTEM DISORDER [None]
  - NEUROTOXICITY [None]
